FAERS Safety Report 23210685 (Version 10)
Quarter: 2024Q1

REPORT INFORMATION
  Report Type: Report from Study
  Country: CO (occurrence: CO)
  Receive Date: 20231121
  Receipt Date: 20240314
  Transmission Date: 20240410
  Serious: Yes (Other)
  Sender: FDA-Public Use
  Company Number: CO-TAKEDA-2023TUS105470

PATIENT
  Age: 52 Year
  Sex: Female
  Weight: 60 kg

DRUGS (3)
  1. VEDOLIZUMAB [Suspect]
     Active Substance: VEDOLIZUMAB
     Indication: Colitis ulcerative
     Dosage: 300 MILLIGRAM, Q4WEEKS
     Route: 042
     Dates: start: 20210618
  2. MESALAMINE [Suspect]
     Active Substance: MESALAMINE
     Indication: Product used for unknown indication
     Dosage: UNK
     Route: 065
  3. AZATHIOPRINE [Concomitant]
     Active Substance: AZATHIOPRINE
     Dosage: UNK

REACTIONS (15)
  - Colitis ulcerative [Unknown]
  - Colitis [Unknown]
  - Weight decreased [Unknown]
  - Productive cough [Unknown]
  - Diarrhoea [Unknown]
  - Drug ineffective [Unknown]
  - Rectal discharge [Unknown]
  - Product dose omission issue [Unknown]
  - Urinary tract infection [Unknown]
  - Alopecia [Unknown]
  - Gingival disorder [Unknown]
  - Abdominal pain [Unknown]
  - Flatulence [Unknown]
  - Depressed mood [Unknown]
  - Stress [Unknown]

NARRATIVE: CASE EVENT DATE: 20231026
